FAERS Safety Report 9199514 (Version 1)
Quarter: 2013Q1

REPORT INFORMATION
  Report Type: Spontaneous
  Country: US (occurrence: US)
  Receive Date: 20130329
  Receipt Date: 20130329
  Transmission Date: 20140127
  Serious: No
  Sender: FDA-Public Use
  Company Number: US-PFIZER INC-2013098828

PATIENT
  Sex: 0

DRUGS (2)
  1. ADVIL [Suspect]
     Indication: LOCAL SWELLING
     Dosage: 2 PILLS, UNK
     Dates: start: 20130109, end: 201301
  2. ADVIL [Suspect]
     Dosage: 1 PILL, UNK
     Dates: start: 20130110

REACTIONS (1)
  - Drug effect incomplete [Unknown]
